FAERS Safety Report 14508571 (Version 4)
Quarter: 2018Q4

REPORT INFORMATION
  Report Type: Report from Study
  Country: JP (occurrence: JP)
  Receive Date: 20180209
  Receipt Date: 20181008
  Transmission Date: 20190204
  Serious: Yes (Other)
  Sender: FDA-Public Use
  Company Number: JP-ALXN-A201801179AA

PATIENT
  Age: 1 Year
  Sex: Male
  Weight: 7.41 kg

DRUGS (11)
  1. STRENSIQ [Suspect]
     Active Substance: ASFOTASE ALFA
     Indication: HYPOPHOSPHATASIA
     Dosage: 1 MG/KG, SIX TIMES/WEEK
     Route: 058
     Dates: start: 20170113, end: 20170113
  2. PULMICORT TURBUHALER [Concomitant]
     Active Substance: BUDESONIDE
     Indication: ASTHMA
     Dosage: 1 DF, BID
  3. STRENSIQ [Suspect]
     Active Substance: ASFOTASE ALFA
     Dosage: 1 MG/KG, SIX TIMES/WEEK
     Route: 058
     Dates: start: 20180216
  4. TAMIFLU [Concomitant]
     Active Substance: OSELTAMIVIR PHOSPHATE
     Indication: ANTIVIRAL PROPHYLAXIS
     Dosage: 15 MG, QD
     Route: 048
     Dates: start: 20180123
  5. STRENSIQ [Suspect]
     Active Substance: ASFOTASE ALFA
     Dosage: 2 MG/KG, TIW
     Route: 058
     Dates: start: 20170116, end: 20180214
  6. ONON [Concomitant]
     Active Substance: PRANLUKAST
     Indication: ASTHMA
     Dosage: 30 MG, BID
     Route: 048
  7. TULOBUTEROL [Concomitant]
     Active Substance: TULOBUTEROL
     Indication: ASTHMA
     Dosage: 1 DF, QD
     Route: 062
  8. CALCIUM LACTATE [Suspect]
     Active Substance: CALCIUM LACTATE
     Indication: HYPOPHOSPHATASIA
     Dosage: 0.13 G, TID
     Route: 048
     Dates: start: 20170127, end: 20170403
  9. PYRIDOXINE HYDROCHLORIDE. [Concomitant]
     Active Substance: PYRIDOXINE HYDROCHLORIDE
     Indication: VITAMIN B6 DEFICIENCY
     Dosage: 0.01 G, TID
     Route: 048
  10. CALCIUM LACTATE [Suspect]
     Active Substance: CALCIUM LACTATE
     Dosage: 0.27 G, TID
     Route: 048
     Dates: start: 20170404, end: 20170909
  11. CALCIUM LACTATE [Suspect]
     Active Substance: CALCIUM LACTATE
     Dosage: 0.33 G, TID
     Route: 048
     Dates: start: 20170910, end: 20180129

REACTIONS (1)
  - Hypercalcaemia [Not Recovered/Not Resolved]

NARRATIVE: CASE EVENT DATE: 20180129
